FAERS Safety Report 16045451 (Version 1)
Quarter: 2019Q1

REPORT INFORMATION
  Report Type: Report from Study
  Country: KR (occurrence: KR)
  Receive Date: 20190307
  Receipt Date: 20190307
  Transmission Date: 20190418
  Serious: Yes (Death, Other)
  Sender: FDA-Public Use
  Company Number: KR-GLAXOSMITHKLINE-KR2019GSK039633

PATIENT
  Sex: Male

DRUGS (7)
  1. TENOFOVIR DISOPROXIL FUMARATE. [Suspect]
     Active Substance: TENOFOVIR DISOPROXIL FUMARATE
     Indication: CHRONIC HEPATITIS B
     Dosage: 300 MG, QD
  2. TELBIVUDINE [Concomitant]
     Active Substance: TELBIVUDINE
     Indication: HEPATITIS B E ANTIGEN POSITIVE
     Dosage: 600 MG, QD
     Dates: start: 201207
  3. TENOFOVIR DISOPROXIL FUMARATE. [Suspect]
     Active Substance: TENOFOVIR DISOPROXIL FUMARATE
     Dosage: UNK
     Dates: start: 201406
  4. ADEFOVIR [Suspect]
     Active Substance: ADEFOVIR
     Indication: HEPATITIS B E ANTIGEN POSITIVE
     Dosage: 10 MG, QD
     Dates: start: 200906, end: 201206
  5. ENTECAVIR. [Suspect]
     Active Substance: ENTECAVIR
     Indication: HEPATITIS B E ANTIGEN POSITIVE
     Dosage: 0.5 MG, QD
     Dates: start: 200706
  6. LAMIVUDINE. [Suspect]
     Active Substance: LAMIVUDINE
     Dosage: 100 MG, QD
     Dates: start: 200906, end: 201207
  7. LAMIVUDINE. [Suspect]
     Active Substance: LAMIVUDINE
     Indication: HEPATITIS B E ANTIGEN POSITIVE
     Dosage: UNK
     Dates: start: 200601, end: 200612

REACTIONS (6)
  - Hepatocellular carcinoma [Fatal]
  - Drug resistance [Unknown]
  - Viral infection [Unknown]
  - Pathogen resistance [Unknown]
  - Viral mutation identified [Unknown]
  - Hepatitis B DNA increased [Unknown]
